FAERS Safety Report 13871240 (Version 1)
Quarter: 2017Q3

REPORT INFORMATION
  Report Type: Spontaneous
  Country: US (occurrence: US)
  Receive Date: 20170814
  Receipt Date: 20170814
  Transmission Date: 20171127
  Serious: No
  Sender: FDA-Public Use
  Company Number: None

PATIENT
  Age: 49 Year
  Sex: Male
  Weight: 85.5 kg

DRUGS (2)
  1. COREG [Concomitant]
     Active Substance: CARVEDILOL
  2. TESTOSTERONE GEL [Suspect]
     Active Substance: TESTOSTERONE
     Indication: HYPOGONADISM
     Dosage: ?          QUANTITY:30 TUBES;?
     Route: 061
     Dates: start: 20170811, end: 20170811

REACTIONS (5)
  - Nausea [None]
  - Product quality issue [None]
  - Product formulation issue [None]
  - Lacrimation increased [None]
  - Product odour abnormal [None]

NARRATIVE: CASE EVENT DATE: 20170811
